FAERS Safety Report 18861291 (Version 1)
Quarter: 2021Q1

REPORT INFORMATION
  Report Type: Spontaneous
  Country: FR (occurrence: FR)
  Receive Date: 20210208
  Receipt Date: 20210208
  Transmission Date: 20210420
  Serious: Yes (Other)
  Sender: FDA-Public Use
  Company Number: FR-US-PROVELL PHARMACEUTICALS LLC-9016328

PATIENT
  Age: 64 Year
  Sex: Female

DRUGS (1)
  1. LEVOTHYROX [Suspect]
     Active Substance: LEVOTHYROXINE
     Indication: PRODUCT USED FOR UNKNOWN INDICATION

REACTIONS (22)
  - Weight increased [Unknown]
  - Respiratory disorder [Unknown]
  - Arrhythmia [Unknown]
  - Vertigo [Unknown]
  - Malaise [Unknown]
  - Blood thyroid stimulating hormone decreased [Recovered/Resolved]
  - Cardiac dysfunction [Unknown]
  - Migraine [Unknown]
  - Depression [Unknown]
  - Renal disorder [Unknown]
  - Hyperhidrosis [Unknown]
  - Hot flush [Unknown]
  - Fatigue [Unknown]
  - Impaired driving ability [Unknown]
  - Tinnitus [Unknown]
  - Social avoidant behaviour [Unknown]
  - General physical health deterioration [Unknown]
  - Drug intolerance [Unknown]
  - Pruritus [Unknown]
  - Gastrointestinal disorder [Unknown]
  - Alopecia [Unknown]
  - Diarrhoea [Unknown]

NARRATIVE: CASE EVENT DATE: 20170829
